FAERS Safety Report 5154263-8 (Version None)
Quarter: 2006Q4

REPORT INFORMATION
  Report Type: 
  Country: None (occurrence: None)
  Receive Date: 20061120
  Receipt Date: 20061107
  Transmission Date: 20070319
  Serious: Yes (Disabling, Other)
  Sender: FDA-Public Use
  Company Number: GB-ELI_LILLY_AND_COMPANY-GB200611001033

PATIENT
  Age: 78 Year
  Sex: Female
  Weight: 85 kg

DRUGS (7)
  1. YENTREVE [Suspect]
     Indication: STRESS URINARY INCONTINENCE
     Dosage: 20 MG, 2/D
     Route: 048
     Dates: start: 20060601
  2. ALLOPURINOL [Concomitant]
     Route: 048
  3. METFORMIN [Concomitant]
     Route: 048
  4. RAMIPRIL [Concomitant]
     Route: 048
  5. SALMETEROL [Concomitant]
     Route: 048
  6. SIMVASTATIN [Concomitant]
     Route: 048
  7. TOLTERODINE [Concomitant]
     Route: 048

REACTIONS (7)
  - AMNESIA [None]
  - CONFUSIONAL STATE [None]
  - COORDINATION ABNORMAL [None]
  - DECREASED APPETITE [None]
  - FEELING ABNORMAL [None]
  - STARING [None]
  - WEIGHT DECREASED [None]
